FAERS Safety Report 5316375-5 (Version None)
Quarter: 2007Q2

REPORT INFORMATION
  Report Type: 
  Country: None (occurrence: None)
  Receive Date: 20070430
  Receipt Date: 20070426
  Transmission Date: 20071010
  Serious: Yes (Death)
  Sender: FDA-Public Use
  Company Number: 20073722

PATIENT
  Sex: Female

DRUGS (5)
  1. LIORESAL [Suspect]
     Indication: MUSCLE SPASTICITY
     Dosage: MCG, DAILY, INTRATHECAL
     Route: 037
  2. EFFEXOR [Concomitant]
  3. FENTANYL [Concomitant]
  4. CLONIDINE [Concomitant]
  5. PRIATT [Concomitant]

REACTIONS (4)
  - DEATH OF RELATIVE [None]
  - EMOTIONAL DISORDER [None]
  - PAIN [None]
  - PROCEDURAL COMPLICATION [None]
